FAERS Safety Report 9928988 (Version 2)
Quarter: 2014Q2

REPORT INFORMATION
  Report Type: Spontaneous
  Country: US (occurrence: US)
  Receive Date: 20140227
  Receipt Date: 20140619
  Transmission Date: 20141212
  Serious: Yes (Other)
  Sender: FDA-Public Use
  Company Number: US-BAYER-2014-027495

PATIENT
  Age: 44 Year
  Sex: Female
  Weight: 83.5 kg

DRUGS (2)
  1. STIVARGA [Suspect]
     Indication: GASTROINTESTINAL STROMAL CANCER
     Dosage: 160 MG, QD
     Route: 048
     Dates: start: 20131124, end: 201312
  2. STIVARGA [Suspect]
     Indication: GASTROINTESTINAL STROMAL CANCER
     Dosage: 80 MG, QD
     Route: 048
     Dates: start: 201401

REACTIONS (1)
  - Toxicity to various agents [None]
